FAERS Safety Report 4646119-1 (Version None)
Quarter: 2005Q2

REPORT INFORMATION
  Report Type: 
  Country: None (occurrence: None)
  Receive Date: 20050427
  Receipt Date: 20040722
  Transmission Date: 20051028
  Serious: No
  Sender: FDA-Public Use
  Company Number: US-GLAXOSMITHKLINE-A0519403A

PATIENT
  Age: 28 Year
  Sex: Male

DRUGS (8)
  1. ZOFRAN [Suspect]
     Indication: ILL-DEFINED DISORDER
     Dosage: 24MG PER DAY
     Route: 048
  2. CELEXA [Suspect]
     Dates: start: 20030901
  3. ATIVAN [Concomitant]
  4. BENADRYL [Concomitant]
  5. ANAFRANIL CAP [Concomitant]
  6. CHRONULAC [Concomitant]
  7. ZOCOR [Concomitant]
  8. AXID [Concomitant]

REACTIONS (2)
  - HYPOVOLAEMIA [None]
  - ORTHOSTATIC HYPOTENSION [None]
